FAERS Safety Report 26128577 (Version 1)
Quarter: 2025Q4

REPORT INFORMATION
  Report Type: Spontaneous
  Country: CN (occurrence: CN)
  Receive Date: 20251207
  Receipt Date: 20251207
  Transmission Date: 20260117
  Serious: Yes (Hospitalization)
  Sender: BEIGENE
  Company Number: CN-BEONEMEDICINES-BGN-2025-021413

PATIENT
  Age: 40 Year
  Sex: Male
  Weight: 62 kg

DRUGS (8)
  1. TISLELIZUMAB [Suspect]
     Active Substance: TISLELIZUMAB
     Indication: Gastric cancer
     Dosage: 200 MILLIGRAM
  2. TISLELIZUMAB [Suspect]
     Active Substance: TISLELIZUMAB
     Dosage: 200 MILLIGRAM
     Route: 041
  3. TISLELIZUMAB [Suspect]
     Active Substance: TISLELIZUMAB
     Dosage: 200 MILLIGRAM
     Route: 041
  4. TISLELIZUMAB [Suspect]
     Active Substance: TISLELIZUMAB
     Dosage: 200 MILLIGRAM
  5. CAPECITABINE [Suspect]
     Active Substance: CAPECITABINE
     Indication: Gastric cancer
     Dosage: 1800 MILLIGRAM
     Route: 048
  6. CAPECITABINE [Suspect]
     Active Substance: CAPECITABINE
     Dosage: 1800 MILLIGRAM
  7. CISPLATIN [Suspect]
     Active Substance: CISPLATIN
     Indication: Gastric cancer
     Dosage: 150 MILLIGRAM
     Route: 041
  8. CISPLATIN [Suspect]
     Active Substance: CISPLATIN
     Dosage: 150 MILLIGRAM

REACTIONS (3)
  - Myelosuppression [Not Recovered/Not Resolved]
  - Platelet count decreased [Not Recovered/Not Resolved]
  - Pancytopenia [Not Recovered/Not Resolved]

NARRATIVE: CASE EVENT DATE: 20251111
